FAERS Safety Report 7423697-0 (Version None)
Quarter: 2011Q2

REPORT INFORMATION
  Report Type: 
  Country: None (occurrence: None)
  Receive Date: 20110419
  Receipt Date: 20110323
  Transmission Date: 20111010
  Serious: No
  Sender: FDA-Public Use
  Company Number: US-B.I. PHARMACEUTICALS,INC./RIDGEFIELD-2011-BP-09014BP

PATIENT
  Sex: Female

DRUGS (16)
  1. FLECAINIDE ACETATE [Concomitant]
     Indication: ATRIAL FIBRILLATION
     Dosage: 200 MG
  2. FOLIC ACID [Concomitant]
  3. POTASSIUM [Concomitant]
  4. METAXALONE [Concomitant]
  5. PRADAXA [Suspect]
     Indication: CEREBROVASCULAR ACCIDENT PROPHYLAXIS
     Route: 048
     Dates: start: 20110321
  6. METOPROLOL [Concomitant]
     Indication: HYPERTENSION
     Dosage: 25 MG
  7. FLONASE [Concomitant]
  8. SYNTHROID [Concomitant]
     Indication: HYPOTHYROIDISM
  9. MORPHINE SULFATE [Concomitant]
     Indication: PAIN
     Dosage: 30 MG
  10. OXYCODONE HCL [Concomitant]
     Indication: PAIN
  11. OMEPRAZOLE [Concomitant]
     Indication: OESOPHAGEAL DISORDER
  12. THIAMINE HCL [Concomitant]
  13. MAGNESIUM [Concomitant]
     Indication: BLOOD MAGNESIUM DECREASED
  14. AMLODIPINE [Concomitant]
     Indication: HYPERTENSION
     Dosage: 5 MG
  15. VYTORIN [Concomitant]
     Indication: BLOOD CHOLESTEROL INCREASED
  16. MULTI-VITAMINS [Concomitant]

REACTIONS (3)
  - OESOPHAGEAL PAIN [None]
  - GASTROOESOPHAGEAL REFLUX DISEASE [None]
  - DYSPEPSIA [None]
